FAERS Safety Report 4341426-4 (Version None)
Quarter: 2004Q2

REPORT INFORMATION
  Report Type: 
  Country: None (occurrence: None)
  Receive Date: 20040415
  Receipt Date: 20040402
  Transmission Date: 20050107
  Serious: Yes (Hospitalization)
  Sender: FDA-Public Use
  Company Number: 2004023051

PATIENT
  Age: 74 Year
  Sex: Female

DRUGS (7)
  1. AMLODIPINE [Suspect]
     Indication: ESSENTIAL HYPERTENSION
     Dosage: 5 MG (DAILY), ORAL
     Route: 048
     Dates: start: 20040315, end: 20040329
  2. DISOMIN (DIOSMIN) [Suspect]
     Indication: OEDEMA
     Dosage: 1500 (DAILY), ORAL
     Route: 048
     Dates: start: 20040320, end: 20040329
  3. CABERGOLINE [Concomitant]
  4. DIOVAN HCT [Concomitant]
  5. ALPRAZOLAM [Concomitant]
  6. MADOPAR           (BENSERAZIDE HYDROCHLORIDE, LEVODOPA) [Concomitant]
  7. AMANTADINE HCL [Concomitant]

REACTIONS (1)
  - RASH MACULO-PAPULAR [None]
